FAERS Safety Report 26116303 (Version 1)
Quarter: 2025Q4

REPORT INFORMATION
  Report Type: Spontaneous
  Country: US (occurrence: US)
  Receive Date: 20251203
  Receipt Date: 20251203
  Transmission Date: 20260118
  Serious: Yes (Life-Threatening, Hospitalization)
  Sender: MYLAN
  Company Number: US-MYLANLABS-2025M1100009

PATIENT
  Age: 14 Year
  Sex: Female

DRUGS (9)
  1. AMLODIPINE [Suspect]
     Active Substance: AMLODIPINE BESYLATE
     Indication: Product used for unknown indication
     Dosage: 900 MILLIGRAM ( INGESTED 900MG OF AMLODIPINE)
  2. NOREPINEPHRINE [Suspect]
     Active Substance: NOREPINEPHRINE
     Indication: Hypoxia
     Dosage: UNK
  3. VASOPRESSIN [Suspect]
     Active Substance: VASOPRESSIN
     Indication: Hypoxia
     Dosage: UNK
  4. VASOPRESSIN [Suspect]
     Active Substance: VASOPRESSIN
     Indication: Overdose
  5. DOPAMINE [Suspect]
     Active Substance: DOPAMINE HYDROCHLORIDE
     Indication: Hypoxia
     Dosage: UNK
  6. CALCIUM [Suspect]
     Active Substance: CALCIUM
     Indication: Hypoxia
     Dosage: UNK, INFUSION
  7. INSULIN NOS [Suspect]
     Active Substance: INSULIN NOS
     Indication: Hypoxia
     Dosage: UNK
  8. INSULIN NOS [Suspect]
     Active Substance: INSULIN NOS
     Dosage: UNK, HIGH DOSE, 6 U/KG/HR
  9. METHYLENE BLUE [Suspect]
     Active Substance: METHYLENE BLUE
     Indication: Hypoxia
     Dosage: UNK

REACTIONS (5)
  - Overdose [Recovered/Resolved]
  - Toxicity to various agents [Recovered/Resolved]
  - Hypoxia [Recovered/Resolved]
  - Anuria [Recovered/Resolved]
  - Drug ineffective [Unknown]
